FAERS Safety Report 9110073 (Version 1)
Quarter: 2013Q1

REPORT INFORMATION
  Report Type: Spontaneous
  Country: US (occurrence: US)
  Receive Date: 20130222
  Receipt Date: 20130222
  Transmission Date: 20140127
  Serious: Yes (Other)
  Sender: FDA-Public Use
  Company Number: US-JNJFOC-20120701871

PATIENT
  Sex: Female

DRUGS (9)
  1. TOPAMAX [Suspect]
     Indication: MIGRAINE
     Route: 048
     Dates: start: 200802, end: 2010
  2. TOPAMAX [Suspect]
     Indication: MIGRAINE
     Route: 048
     Dates: start: 2010, end: 2011
  3. TERCONAZOLE [Suspect]
     Indication: PRODUCT USED FOR UNKNOWN INDICATION
     Route: 065
     Dates: start: 201103
  4. SUMATRIPTAN [Suspect]
     Indication: PRODUCT USED FOR UNKNOWN INDICATION
     Route: 065
     Dates: start: 201103
  5. CITALOPRAM HBR [Suspect]
     Indication: BIPOLAR DISORDER
     Route: 065
     Dates: start: 201102
  6. COMBIVENT [Suspect]
     Indication: ASTHMA
     Route: 045
     Dates: start: 201009
  7. CIPRODEX [Suspect]
     Indication: PRODUCT USED FOR UNKNOWN INDICATION
     Route: 065
     Dates: start: 201102
  8. HYDROCODONE [Suspect]
     Indication: PRODUCT USED FOR UNKNOWN INDICATION
     Route: 065
  9. PRENATAL VITAMIN [Concomitant]
     Indication: PREGNANCY
     Route: 065
     Dates: start: 201104

REACTIONS (5)
  - Depression [Unknown]
  - Emotional distress [Unknown]
  - Exposure during pregnancy [Recovered/Resolved]
  - Premature delivery [Recovered/Resolved]
  - Anxiety [Unknown]
